FAERS Safety Report 23555618 (Version 1)
Quarter: 2024Q1

REPORT INFORMATION
  Report Type: Spontaneous
  Country: CH (occurrence: CH)
  Receive Date: 20240222
  Receipt Date: 20240222
  Transmission Date: 20240410
  Serious: Yes (Death, Hospitalization, Other)
  Sender: FDA-Public Use
  Company Number: CH-SM-2024-10194

PATIENT
  Age: 74 Year
  Sex: Female
  Weight: 75 kg

DRUGS (7)
  1. KEYTRUDA [Suspect]
     Active Substance: PEMBROLIZUMAB
     Dosage: IN TOTAL
     Route: 042
     Dates: start: 20230221, end: 20230221
  2. LENVATINIB MESYLATE [Suspect]
     Active Substance: LENVATINIB MESYLATE
     Route: 048
     Dates: start: 20230221, end: 20230308
  3. ENALAPRIL [Concomitant]
     Active Substance: ENALAPRIL
  4. AMLODIPINE [Concomitant]
     Active Substance: AMLODIPINE BESYLATE
  5. MOXONIDINE [Concomitant]
     Active Substance: MOXONIDINE
  6. MESTINON [Concomitant]
     Active Substance: PYRIDOSTIGMINE BROMIDE
     Route: 048
     Dates: end: 20230317
  7. MESTINON [Concomitant]
     Active Substance: PYRIDOSTIGMINE BROMIDE
     Route: 048
     Dates: start: 20230318

REACTIONS (5)
  - Necrotising myositis [Fatal]
  - Myocarditis [Fatal]
  - Myasthenia gravis [Fatal]
  - Tubulointerstitial nephritis [Fatal]
  - Glomerulonephritis [Fatal]

NARRATIVE: CASE EVENT DATE: 20230301
